FAERS Safety Report 7782712-5 (Version None)
Quarter: 2011Q3

REPORT INFORMATION
  Report Type: 
  Country: None (occurrence: None)
  Receive Date: 20110928
  Receipt Date: 20110914
  Transmission Date: 20111222
  Serious: Yes (Death, Hospitalization)
  Sender: FDA-Public Use
  Company Number: GB-MYLANLABS-2011S1019103

PATIENT
  Age: 18 Year
  Sex: Female

DRUGS (3)
  1. DICLOFENAC [Suspect]
     Indication: PRODUCT USED FOR UNKNOWN INDICATION
  2. FERROUS SULFATE TAB [Suspect]
     Indication: PRODUCT USED FOR UNKNOWN INDICATION
  3. DIAZEPAM [Suspect]
     Indication: PRODUCT USED FOR UNKNOWN INDICATION

REACTIONS (21)
  - RENAL FAILURE [None]
  - MULTI-ORGAN FAILURE [None]
  - COMPLICATIONS OF TRANSPLANTED LIVER [None]
  - PERFORATION BILE DUCT [None]
  - ASPERGILLOSIS [None]
  - CONDITION AGGRAVATED [None]
  - HEPATIC NECROSIS [None]
  - INTRACRANIAL PRESSURE INCREASED [None]
  - GRAFT ISCHAEMIA [None]
  - SEPTIC SHOCK [None]
  - BLOOD IRON INCREASED [None]
  - ACUTE RESPIRATORY DISTRESS SYNDROME [None]
  - RIGHT VENTRICULAR FAILURE [None]
  - PULMONARY HYPERTENSION [None]
  - OVERDOSE [None]
  - CEREBRAL HAEMORRHAGE [None]
  - BRAIN STEM INFARCTION [None]
  - ENCEPHALOPATHY [None]
  - SHOCK [None]
  - SEPSIS [None]
  - BRAIN ABSCESS [None]
